FAERS Safety Report 11377829 (Version 1)
Quarter: 2015Q3

REPORT INFORMATION
  Report Type: Spontaneous
  Country: US (occurrence: US)
  Receive Date: 20150811
  Receipt Date: 20150811
  Transmission Date: 20151125
  Serious: No
  Sender: FDA-Public Use
  Company Number: US-ELI_LILLY_AND_COMPANY-US200909003070

PATIENT
  Age: 66 Year
  Sex: Female

DRUGS (2)
  1. HUMULIN 70/30 [Suspect]
     Active Substance: INSULIN HUMAN
  2. PRILOSEC [Concomitant]
     Active Substance: OMEPRAZOLE MAGNESIUM

REACTIONS (4)
  - Product quality issue [Recovering/Resolving]
  - Asthenia [Recovering/Resolving]
  - Nervousness [Recovering/Resolving]
  - Poor quality drug administered [Recovering/Resolving]

NARRATIVE: CASE EVENT DATE: 20090914
